FAERS Safety Report 20484536 (Version 1)
Quarter: 2022Q1

REPORT INFORMATION
  Report Type: Spontaneous
  Country: US (occurrence: US)
  Receive Date: 20220217
  Receipt Date: 20220217
  Transmission Date: 20220423
  Serious: No
  Sender: FDA-Public Use
  Company Number: US-PFIZER INC-202200023427

PATIENT
  Age: 11 Year
  Sex: Female
  Weight: 27.2 kg

DRUGS (1)
  1. GENOTROPIN [Suspect]
     Active Substance: SOMATROPIN
     Dosage: UNK

REACTIONS (3)
  - Underdose [Unknown]
  - Device leakage [Unknown]
  - Drug dose omission by device [Unknown]
